FAERS Safety Report 20470942 (Version 2)
Quarter: 2022Q1

REPORT INFORMATION
  Report Type: Report from Study
  Country: US (occurrence: US)
  Receive Date: 20220214
  Receipt Date: 20220217
  Transmission Date: 20220423
  Serious: No
  Sender: FDA-Public Use
  Company Number: US-NOVARTISTESTPH-NVSC2022US031167

PATIENT
  Sex: Female

DRUGS (1)
  1. ENTRESTO [Suspect]
     Active Substance: SACUBITRIL\VALSARTAN
     Indication: Heart rate increased
     Dosage: 1 DOSAGE FORM, BID
     Route: 065
     Dates: start: 202106

REACTIONS (3)
  - Visual impairment [Unknown]
  - Hypotension [Unknown]
  - Product dose omission issue [Unknown]
